FAERS Safety Report 8122341 (Version 10)
Quarter: 2018Q3

REPORT INFORMATION
  Report Type: Spontaneous
  Country: US (occurrence: US)
  Receive Date: 20110906
  Receipt Date: 20180809
  Transmission Date: 20181010
  Serious: Yes (Disabling, Other)
  Sender: FDA-Public Use
  Company Number: US-JNJFOC-20101104325

PATIENT
  Age: 30 Year
  Sex: Female

DRUGS (5)
  1. REMICADE [Suspect]
     Active Substance: INFLIXIMAB
     Indication: CROHN^S DISEASE
     Route: 042
     Dates: start: 20020807
  2. 6?MP [Suspect]
     Active Substance: MERCAPTOPURINE
     Indication: CROHN^S DISEASE
  3. REMICADE [Suspect]
     Active Substance: INFLIXIMAB
     Indication: CROHN^S DISEASE
     Dosage: FOUR DOSES RECEIVED
     Route: 042
     Dates: start: 19990825
  4. REMICADE [Suspect]
     Active Substance: INFLIXIMAB
     Indication: CROHN^S DISEASE
     Route: 042
     Dates: start: 20021004
  5. REMICADE [Suspect]
     Active Substance: INFLIXIMAB
     Indication: CROHN^S DISEASE
     Route: 042
     Dates: start: 20030612, end: 2003

REACTIONS (13)
  - Chest pain [Unknown]
  - Fibromyalgia [Unknown]
  - Abortion spontaneous [Unknown]
  - Abdominal pain [Unknown]
  - Hyperhidrosis [Unknown]
  - Hyperbilirubinaemia [Unknown]
  - Exposure during pregnancy [Unknown]
  - Multiple sclerosis [Unknown]
  - Dyspnoea [Unknown]
  - Arthralgia [Unknown]
  - Dizziness [Unknown]
  - Pollakiuria [Unknown]
  - Pyrexia [Unknown]

NARRATIVE: CASE EVENT DATE: 1999
